FAERS Safety Report 21484697 (Version 1)
Quarter: 2022Q4

REPORT INFORMATION
  Report Type: Spontaneous
  Country: DE (occurrence: DE)
  Receive Date: 20221020
  Receipt Date: 20221020
  Transmission Date: 20230113
  Serious: Yes (Hospitalization)
  Sender: FDA-Public Use
  Company Number: DE-ADRED-08259-01

PATIENT
  Age: 90 Year
  Sex: Male

DRUGS (8)
  1. METOPROLOL [Suspect]
     Active Substance: METOPROLOL
     Indication: Product used for unknown indication
     Dosage: .5 DOSAGE FORMS DAILY; 47.5 MG, 0.5-0-0-0
  2. PREGABALIN [Suspect]
     Active Substance: PREGABALIN
     Indication: Product used for unknown indication
     Dosage: 25 MILLIGRAM DAILY; 25 MG, 0-0-1-0
  3. TAMSULOSIN [Suspect]
     Active Substance: TAMSULOSIN
     Indication: Product used for unknown indication
     Dosage: .4 MILLIGRAM DAILY; 0.4 MG, 1-0-0-0
  4. LERCANIDIPINE [Suspect]
     Active Substance: LERCANIDIPINE
     Indication: Product used for unknown indication
     Dosage: 10 MILLIGRAM DAILY; 10 MG, 0-0-1-0
  5. CANDESARTAN CILEXETIL\HYDROCHLOROTHIAZIDE [Suspect]
     Active Substance: CANDESARTAN CILEXETIL\HYDROCHLOROTHIAZIDE
     Indication: Product used for unknown indication
     Dosage: 1 DOSAGE FORMS DAILY; 32|12.5 MG, 1-0-0-0, 32MG/ 12.5MG
  6. MOLSIDOMINE [Concomitant]
     Active Substance: MOLSIDOMINE
     Indication: Product used for unknown indication
     Dosage: 8 MILLIGRAM DAILY; 8 MG, 0-0-1-0
  7. ASPIRIN [Concomitant]
     Active Substance: ASPIRIN
     Indication: Product used for unknown indication
     Dosage: 100 MILLIGRAM DAILY; 100 MG, 1-0-0-0 , ACETYLSALICYLSAEURE
  8. ATORVASTATIN [Concomitant]
     Active Substance: ATORVASTATIN
     Indication: Product used for unknown indication
     Dosage: .5 DOSAGE FORMS DAILY; 20 MG, 0-0-0.5-0

REACTIONS (3)
  - Spinal pain [Unknown]
  - Dizziness [Unknown]
  - Arthralgia [Unknown]
